FAERS Safety Report 4586052-7 (Version None)
Quarter: 2005Q1

REPORT INFORMATION
  Report Type: 
  Country: None (occurrence: None)
  Receive Date: 20050125
  Receipt Date: 20040921
  Transmission Date: 20050727
  Serious: No
  Sender: FDA-Public Use
  Company Number: USA040978928

PATIENT
  Age: 67 Year
  Sex: Female
  Weight: 53 kg

DRUGS (5)
  1. FORTEO [Suspect]
     Indication: FRACTURE
     Dosage: 20 UG/ 1DAY
     Dates: start: 20040801, end: 20040919
  2. CALCIUM CARBONATE [Concomitant]
  3. HUMIRA [Concomitant]
  4. PLAQUENIL [Concomitant]
  5. SYNTHROID [Concomitant]

REACTIONS (7)
  - DIZZINESS [None]
  - DYSPEPSIA [None]
  - FAECES HARD [None]
  - FEELING ABNORMAL [None]
  - INJECTION SITE HAEMORRHAGE [None]
  - MUSCLE SPASMS [None]
  - RHINORRHOEA [None]
